FAERS Safety Report 7104020-8 (Version None)
Quarter: 2010Q4

REPORT INFORMATION
  Report Type: 
  Country: None (occurrence: None)
  Receive Date: 20101115
  Receipt Date: 20100513
  Transmission Date: 20110411
  Serious: No
  Sender: FDA-Public Use
  Company Number: US-ALLERGAN-1006347US

PATIENT
  Age: 38 Year
  Sex: Female

DRUGS (1)
  1. BOTOX COSMETIC [Suspect]
     Indication: SKIN WRINKLING
     Dosage: 30 UNITS, SINGLE
     Route: 030
     Dates: start: 20091216, end: 20091216

REACTIONS (6)
  - ABNORMAL SENSATION IN EYE [None]
  - DARK CIRCLES UNDER EYES [None]
  - EYE PAIN [None]
  - FACIAL PARESIS [None]
  - OCULAR HYPERAEMIA [None]
  - SWELLING FACE [None]
